FAERS Safety Report 21452218 (Version 2)
Quarter: 2023Q1

REPORT INFORMATION
  Report Type: Report from Study
  Country: US (occurrence: US)
  Receive Date: 20221013
  Receipt Date: 20230104
  Transmission Date: 20230418
  Serious: No
  Sender: FDA-Public Use
  Company Number: US-ABBVIE-22K-163-4518232-00

PATIENT
  Age: 62 Year
  Sex: Female

DRUGS (5)
  1. HUMIRA [Suspect]
     Active Substance: ADALIMUMAB
     Indication: Colitis ulcerative
     Dosage: CITRATE FREE?HUMIRA 40MG/0.4ML
     Route: 058
  2. HUMIRA [Suspect]
     Active Substance: ADALIMUMAB
     Dosage: CITRATE FREE?FORM STRENGTH-40 MG
     Route: 058
  3. PFIZER/BIONTECH [Concomitant]
     Indication: COVID-19 immunisation
     Dosage: 1ST DOSE: 1 IN ONCE
     Route: 030
     Dates: start: 20210407, end: 20210407
  4. PFIZER/BIONTECH [Concomitant]
     Indication: COVID-19 immunisation
     Dosage: 2ND DOSE: 1 IN ONCE
     Route: 030
     Dates: start: 20210428, end: 20210428
  5. PFIZER/BIONTECH [Concomitant]
     Indication: COVID-19 immunisation
     Dosage: BOOSTER DOSE: 1 IN ONCE
     Route: 030
     Dates: start: 20211116, end: 20211116

REACTIONS (1)
  - Colitis [Unknown]

NARRATIVE: CASE EVENT DATE: 20220601
